FAERS Safety Report 7056194-5 (Version None)
Quarter: 2010Q4

REPORT INFORMATION
  Report Type: 
  Country: None (occurrence: None)
  Receive Date: 20101018
  Receipt Date: 20100927
  Transmission Date: 20110411
  Serious: No
  Sender: FDA-Public Use
  Company Number: 2010-00853

PATIENT
  Age: 74 Year
  Sex: Female
  Weight: 97.5234 kg

DRUGS (4)
  1. ZICAM COLD REMEDY NASAL GEL [Suspect]
     Dosage: QID X 2 DAYS
     Dates: start: 20100921, end: 20100922
  2. ZYRTEC [Concomitant]
  3. LIPITOR [Concomitant]
  4. ACTOPRIL [Concomitant]

REACTIONS (3)
  - AGEUSIA [None]
  - ANOSMIA [None]
  - NASAL DISCOMFORT [None]
